FAERS Safety Report 8294587 (Version 6)
Quarter: 2012Q4

REPORT INFORMATION
  Report Type: 
  Country: US (occurrence: US)
  Receive Date: 20111216
  Receipt Date: 20121111
  Transmission Date: 20130627
  Serious: No
  Sender: FDA-Public Use
  Company Number: PHEH2011US011767

PATIENT
  Age: 58 Year
  Sex: Male

DRUGS (8)
  1. TASIGNA [Suspect]
     Indication: CHRONIC MYELOID LEUKAEMIA
     Dosage: 300 mg, BID
     Route: 048
     Dates: start: 20111010
  2. ENALAPRIL W/HYDROCHLOROTHIAZIDE [Concomitant]
  3. COREG [Concomitant]
  4. CRESTOR [Concomitant]
  5. CETRIZINE [Concomitant]
  6. GLUCOSAMINE /CHONDROITIN /MSM [Concomitant]
  7. MULTIVITAMINS [Concomitant]
  8. LEVEMIR [Concomitant]

REACTIONS (6)
  - Rash [Recovering/Resolving]
  - Pruritus [Recovering/Resolving]
  - Platelet count decreased [Recovering/Resolving]
  - Flushing [Recovering/Resolving]
  - Skin hypertrophy [Unknown]
  - Formication [Unknown]
